FAERS Safety Report 20751285 (Version 1)
Quarter: 2022Q2

REPORT INFORMATION
  Report Type: Spontaneous
  Country: US (occurrence: US)
  Receive Date: 20220426
  Receipt Date: 20220426
  Transmission Date: 20220720
  Serious: Yes (Other)
  Sender: FDA-Public Use
  Company Number: US-PFIZER INC-2021187541

PATIENT
  Age: 61 Year
  Sex: Female
  Weight: 65.77 kg

DRUGS (2)
  1. LIOTHYRONINE SODIUM [Suspect]
     Active Substance: LIOTHYRONINE SODIUM
     Indication: Hypothyroidism
     Dosage: UNK
  2. LEVOTHYROXINE SODIUM [Suspect]
     Active Substance: LEVOTHYROXINE SODIUM
     Indication: Hypothyroidism
     Dosage: UNK

REACTIONS (12)
  - Pericardial effusion [Unknown]
  - Drug ineffective [Unknown]
  - Alopecia [Unknown]
  - Nail bed disorder [Unknown]
  - Fluid retention [Unknown]
  - Heart rate increased [Unknown]
  - Blood pressure increased [Unknown]
  - Weight increased [Unknown]
  - Fatigue [Unknown]
  - Bedridden [Unknown]
  - Skin swelling [Unknown]
  - Abdominal distension [Unknown]
